FAERS Safety Report 5415457-7 (Version None)
Quarter: 2007Q3

REPORT INFORMATION
  Report Type: 
  Country: None (occurrence: None)
  Receive Date: 20070813
  Receipt Date: 20070813
  Transmission Date: 20080115
  Serious: No
  Sender: FDA-Public Use
  Company Number: None

PATIENT
  Age: 75 Year
  Sex: Female
  Weight: 53.4 kg

DRUGS (1)
  1. FUROSEMIDE [Suspect]
     Indication: HYPERTENSION
     Dosage: 20 MG DAILY PO
     Route: 048
     Dates: start: 20070316, end: 20070319

REACTIONS (1)
  - BLOOD POTASSIUM DECREASED [None]
